FAERS Safety Report 18742208 (Version 7)
Quarter: 2022Q1

REPORT INFORMATION
  Report Type: Report from Study
  Country: CA (occurrence: CA)
  Receive Date: 20210114
  Receipt Date: 20220323
  Transmission Date: 20220423
  Serious: Yes (Other)
  Sender: FDA-Public Use
  Company Number: CA-BAUSCH-BL-2020-015826

PATIENT
  Age: 63 Year
  Sex: Female
  Weight: 70.370 kg

DRUGS (6)
  1. SILIQ [Suspect]
     Active Substance: BRODALUMAB
     Indication: Psoriasis
     Dosage: STRENGTH: 210 MG/ 1.5 ML
     Route: 058
     Dates: start: 20200527, end: 202006
  2. SILIQ [Suspect]
     Active Substance: BRODALUMAB
     Dosage: STRENGTH: 210 MG/ 1.5 ML
     Route: 058
     Dates: start: 20200617
  3. SILIQ [Suspect]
     Active Substance: BRODALUMAB
     Dosage: STRENGTH: 210 MG/ 1.5 ML
     Route: 058
  4. CRESTOR [Concomitant]
     Active Substance: ROSUVASTATIN CALCIUM
     Indication: Product used for unknown indication
     Route: 065
  5. SYNTHROID [Concomitant]
     Active Substance: LEVOTHYROXINE SODIUM
     Indication: Product used for unknown indication
     Route: 065
  6. XELJANZ [Concomitant]
     Active Substance: TOFACITINIB CITRATE
     Indication: Product used for unknown indication
     Dosage: 6 MONTHS AGO
     Route: 065

REACTIONS (18)
  - Abdominal operation [Recovering/Resolving]
  - Psoriatic arthropathy [Unknown]
  - Migraine [Not Recovered/Not Resolved]
  - Sluggishness [Unknown]
  - Gingival pain [Unknown]
  - Skin irritation [Unknown]
  - Pain of skin [Recovering/Resolving]
  - Heart rate increased [Unknown]
  - Pain [Not Recovered/Not Resolved]
  - Psoriasis [Recovered/Resolved]
  - Inflammatory marker increased [Unknown]
  - Fatigue [Unknown]
  - Nausea [Not Recovered/Not Resolved]
  - Headache [Not Recovered/Not Resolved]
  - Inappropriate schedule of product administration [Unknown]
  - Product dose omission issue [Unknown]
  - Therapeutic response unexpected [Unknown]
  - Therapy interrupted [Unknown]

NARRATIVE: CASE EVENT DATE: 20200101
